FAERS Safety Report 25260449 (Version 6)
Quarter: 2025Q3

REPORT INFORMATION
  Report Type: Spontaneous
  Country: CO (occurrence: CO)
  Receive Date: 20250501
  Receipt Date: 20250909
  Transmission Date: 20251021
  Serious: No
  Sender: PFIZER
  Company Number: CO-PFIZER INC-PV202500051786

PATIENT
  Age: 14 Year
  Sex: Male
  Weight: 47 kg

DRUGS (2)
  1. GENOTROPIN [Suspect]
     Active Substance: SOMATROPIN
     Indication: Short stature
     Dosage: 1.4 MG, DAILY
  2. GENOTROPIN [Suspect]
     Active Substance: SOMATROPIN
     Route: 058
     Dates: start: 20240510

REACTIONS (5)
  - Wrong technique in device usage process [Recovered/Resolved]
  - Poor quality device used [Recovered/Resolved]
  - Off label use [Unknown]
  - Device defective [Recovered/Resolved]
  - Device information output issue [Recovered/Resolved]

NARRATIVE: CASE EVENT DATE: 20240510
